FAERS Safety Report 6263932-8 (Version None)
Quarter: 2009Q3

REPORT INFORMATION
  Report Type: 
  Country: None (occurrence: None)
  Receive Date: 20090710
  Receipt Date: 20090706
  Transmission Date: 20100115
  Serious: Yes (Death, Hospitalization)
  Sender: FDA-Public Use
  Company Number: MY-AVENTIS-200916258GDDC

PATIENT
  Age: 33 Year
  Sex: Female

DRUGS (4)
  1. ARAVA [Suspect]
     Indication: RHEUMATOID ARTHRITIS
     Route: 048
     Dates: start: 20090528, end: 20090614
  2. PLAQUENIL                          /00072601/ [Suspect]
     Indication: RHEUMATOID ARTHRITIS
     Route: 048
     Dates: start: 20090425, end: 20090620
  3. PREDNISOLONE [Concomitant]
     Indication: RHEUMATOID ARTHRITIS
     Route: 048
     Dates: start: 20090425, end: 20090620
  4. ROCALTROL [Concomitant]
     Route: 048
     Dates: start: 20090425, end: 20090620

REACTIONS (11)
  - ABDOMINAL PAIN [None]
  - CONVULSION [None]
  - DEATH [None]
  - DIARRHOEA [None]
  - GASTROENTERITIS [None]
  - HYPOTENSION [None]
  - HYPOXIA [None]
  - METABOLIC ACIDOSIS [None]
  - OFF LABEL USE [None]
  - PYREXIA [None]
  - SEPSIS [None]
